FAERS Safety Report 8144030-5 (Version None)
Quarter: 2012Q1

REPORT INFORMATION
  Report Type: 
  Country: None (occurrence: None)
  Receive Date: 20120217
  Receipt Date: 20120217
  Transmission Date: 20120608
  Serious: Yes (Disabling, Other)
  Sender: FDA-Public Use
  Company Number: None

PATIENT
  Age: 47 Year
  Sex: Male
  Weight: 83.914 kg

DRUGS (1)
  1. VICTRELIS [Suspect]
     Indication: HEPATITIS C
     Dosage: 4X200MG
     Route: 048
     Dates: start: 20120107, end: 20120207

REACTIONS (2)
  - DRUG INEFFECTIVE [None]
  - VIRAL LOAD INCREASED [None]
